FAERS Safety Report 6543692-3 (Version None)
Quarter: 2010Q1

REPORT INFORMATION
  Report Type: 
  Country: None (occurrence: None)
  Receive Date: 20100120
  Receipt Date: 20100115
  Transmission Date: 20100710
  Serious: Yes (Death, Hospitalization)
  Sender: FDA-Public Use
  Company Number: BR-ABBOTT-10P-020-0619347-00

PATIENT
  Sex: Female

DRUGS (2)
  1. HUMIRA [Suspect]
     Indication: RHEUMATOID ARTHRITIS
     Route: 058
  2. APRESOLINA [Concomitant]
     Indication: HYPERTENSION
     Route: 048

REACTIONS (3)
  - FALL [None]
  - FEMUR FRACTURE [None]
  - POSTOPERATIVE WOUND INFECTION [None]
